FAERS Safety Report 23638073 (Version 2)
Quarter: 2024Q1

REPORT INFORMATION
  Report Type: Spontaneous
  Country: CA (occurrence: CA)
  Receive Date: 20240315
  Receipt Date: 20240320
  Transmission Date: 20240410
  Serious: Yes (Death, Life-Threatening, Hospitalization, Disabling, Other)
  Sender: FDA-Public Use
  Company Number: CA-ANIPHARMA-2024-CA-001539

PATIENT
  Age: 40 Year
  Sex: Female
  Weight: 96 kg

DRUGS (109)
  1. CANDESARTAN CILEXETIL [Suspect]
     Active Substance: CANDESARTAN CILEXETIL
     Indication: Migraine
     Route: 048
  2. DICLOFENAC SODIUM [Suspect]
     Active Substance: DICLOFENAC\DICLOFENAC SODIUM
  3. ETANERCEPT [Suspect]
     Active Substance: ETANERCEPT
     Dosage: 50 MG WEEK / UNK / UNK / 40 MG UNK / 10 MG WEEK / UNK
     Route: 058
  4. LEFLUNOMIDE [Suspect]
     Active Substance: LEFLUNOMIDE
     Dosage: UNK / UNK / 10 MG DAILY / 10 MG DAILY / 20 MG DAILY / 20 MG UNK
     Route: 048
  5. METFORMIN HYDROCHLORIDE [Suspect]
     Active Substance: METFORMIN HYDROCHLORIDE
     Route: 042
  6. METHYLPREDNISOLONE [Suspect]
     Active Substance: METHYLPREDNISOLONE
  7. MINOCYCLINE [Suspect]
     Active Substance: MINOCYCLINE HYDROCHLORIDE
  8. NAPROXEN SODIUM [Suspect]
     Active Substance: NAPROXEN\NAPROXEN SODIUM
  9. NICOTINAMIDE [Suspect]
     Active Substance: NIACINAMIDE
     Dosage: 1 DF UNK
  10. PLAQUENIL [Suspect]
     Active Substance: HYDROXYCHLOROQUINE SULFATE
  11. PREDNISONE [Suspect]
     Active Substance: PREDNISONE
     Dosage: UNK / 10 MG UNK / UNK / UNK / UNK / UNK / 20 MG DAILY / UNK / 20 MG DAILY
     Route: 048
  12. RANITIDINE [Suspect]
     Active Substance: RANITIDINE
  13. LEFLUNOMIDE [Suspect]
     Active Substance: LEFLUNOMIDE
     Dosage: 10 MG / 10 MG QD / 10 MG / 20 MG / 20 MG QD / 10 MG QD
     Route: 048
  14. SULFASALAZINE [Suspect]
     Active Substance: SULFASALAZINE
     Dosage: UNK / 2 G DAILY / 2 G DAILY / UNK / 2 DF DAILY / UNK / 1 G DAILY / 1 G DAILY / 2 DF DAILY / UNK / 1
     Route: 048
  15. TETRACYCLINE HYDROCHLORIDE [Suspect]
     Active Substance: TETRACYCLINE HYDROCHLORIDE
  16. TRAMADOL HYDROCHLORIDE [Suspect]
     Active Substance: TRAMADOL HYDROCHLORIDE
  17. DICLOFENAC DIETHYLAMINE [Suspect]
     Active Substance: DICLOFENAC DIETHYLAMINE
  18. PREDNISONE [Suspect]
     Active Substance: PREDNISONE
     Dosage: 1 MG UNK / UNK / 50 MG QD / 5 MG UNK / 5 MG UNK / 10 MG UNK / 20 MG DAILY / UNK / UNK / UNK / 40
     Route: 048
  19. TRAMADOL HYDROCHLORIDE [Suspect]
     Active Substance: TRAMADOL HYDROCHLORIDE
  20. APREMILAST [Suspect]
     Active Substance: APREMILAST
     Dosage: 3 MG BID
     Route: 048
  21. ARAVA [Suspect]
     Active Substance: LEFLUNOMIDE
     Dosage: 20 MG DAILY / 20 MG
     Route: 048
  22. ATOMOXETINE HYDROCHLORIDE [Suspect]
     Active Substance: ATOMOXETINE HYDROCHLORIDE
     Dosage: 1 DF
  23. AZATHIOPRINE SODIUM [Suspect]
     Active Substance: AZATHIOPRINE SODIUM
  24. BERINERT [Suspect]
     Active Substance: HUMAN C1-ESTERASE INHIBITOR
  25. BOTULINUM TOXIN TYPE A [Suspect]
     Active Substance: BOTULINUM TOXIN TYPE A
  26. RAMIPRIL [Suspect]
     Active Substance: RAMIPRIL
     Route: 042
  27. BOTULINUM TOXIN TYPE A [Suspect]
     Active Substance: BOTULINUM TOXIN TYPE A
  28. BUTRANS [Suspect]
     Active Substance: BUPRENORPHINE
  29. CALCIUM ASCORBATE [Suspect]
     Active Substance: CALCIUM ASCORBATE
  30. CALCIUM CARBONATE [Suspect]
     Active Substance: CALCIUM CARBONATE
  31. CALCIUM GLUBIONATE [Suspect]
     Active Substance: CALCIUM GLUBIONATE
  32. CELEBREX [Suspect]
     Active Substance: CELECOXIB
     Dosage: 1 DF DAILY / 2 DF DAILY
     Route: 048
  33. CETIRIZINE HYDROCHLORIDE [Suspect]
     Active Substance: CETIRIZINE HYDROCHLORIDE
     Route: 048
  34. CIMZIA [Suspect]
     Active Substance: CERTOLIZUMAB PEGOL
     Route: 058
  35. CORTISONE ACETATE [Suspect]
     Active Substance: CORTISONE ACETATE
     Route: 058
  36. ACETAMINOPHEN [Suspect]
     Active Substance: ACETAMINOPHEN
     Dosage: 20 MG UNK / UNK / UNK
  37. CORTISONE ACETATE [Suspect]
     Active Substance: CORTISONE ACETATE
     Route: 061
  38. COSENTYX [Suspect]
     Active Substance: SECUKINUMAB
  39. DESOXIMETASONE [Suspect]
     Active Substance: DESOXIMETASONE
     Route: 048
  40. DICLOFENAC DIETHYLAMINE [Suspect]
     Active Substance: DICLOFENAC DIETHYLAMINE
  41. DOMPERIDONE MALEATE [Suspect]
     Active Substance: DOMPERIDONE MALEATE
  42. ENBREL [Suspect]
     Active Substance: ETANERCEPT
     Dosage: 50 MG WEEK
     Route: 058
  43. ERELZI [Suspect]
     Active Substance: ETANERCEPT-SZZS
     Dosage: 10 MG WEEK
  44. ERGOCALCIFEROL [Suspect]
     Active Substance: ERGOCALCIFEROL
  45. FLUMETHASONE PIVALATE [Suspect]
     Active Substance: FLUMETHASONE PIVALATE
  46. ACETAMINOPHEN AND CODEINE [Suspect]
     Active Substance: ACETAMINOPHEN\CODEINE PHOSPHATE
     Dosage: DOSE TEXT: USP160MG-8MG/5ML
  47. FOLIC ACID [Suspect]
     Active Substance: FOLIC ACID
     Route: 048
  48. FOSAMAX [Suspect]
     Active Substance: ALENDRONATE SODIUM
     Route: 048
  49. GOLD SODIUM THIOMALATE [Suspect]
     Active Substance: GOLD SODIUM THIOMALATE
  50. GOLIMUMAB [Suspect]
     Active Substance: GOLIMUMAB
     Route: 058
  51. HUMIRA [Suspect]
     Active Substance: ADALIMUMAB
     Route: 058
  52. HYDROCORTISONE [Suspect]
     Active Substance: HYDROCORTISONE
  53. HYDROCORTISONE\NEOMYCIN SULFATE [Suspect]
     Active Substance: HYDROCORTISONE\NEOMYCIN SULFATE
  54. HYDROXYCHLOROQUINE [Suspect]
     Active Substance: HYDROXYCHLOROQUINE
     Dosage: 400 MG QD
  55. HYDROXYCHLOROQUINE [Suspect]
     Active Substance: HYDROXYCHLOROQUINE
  56. ACTEMRA [Suspect]
     Active Substance: TOCILIZUMAB
     Dosage: 25 MG WEEK / 20 MG UNK / 162 MG UNK / 8 MG UNK / 8 MG UNK / 728 MG UNK / 8 MG/KG UNK / 2912 MG UNK /
     Route: 058
  57. ISOPROPYL ALCOHOL [Suspect]
     Active Substance: ISOPROPYL ALCOHOL
     Route: 061
  58. KEVZARA [Suspect]
     Active Substance: SARILUMAB
     Route: 048
  59. LAMICTAL [Suspect]
     Active Substance: LAMOTRIGINE
  60. MAGNESIUM CITRATE [Suspect]
     Active Substance: MAGNESIUM CITRATE
  61. MEGLUMINE [Suspect]
     Active Substance: MEGLUMINE
     Route: 042
  62. METHOTREXATE [Suspect]
     Active Substance: METHOTREXATE
     Dosage: 20 MG DAILY / 25 MG BID / UNK / 25 MG WEEK / 15 MG WEEK
     Route: 048
  63. METHYLPREDNISOLONE SODIUM SUCCINATE [Suspect]
     Active Substance: METHYLPREDNISOLONE SODIUM SUCCINATE
  64. MINOCYCLINE HYDROCHLORIDE [Suspect]
     Active Substance: MINOCYCLINE HYDROCHLORIDE
  65. MYOCHRYSINE [Suspect]
     Active Substance: GOLD SODIUM THIOMALATE
  66. MYRBETRIQ [Suspect]
     Active Substance: MIRABEGRON
     Dosage: 1 DF DAILY
  67. NAPROXEN [Suspect]
     Active Substance: NAPROXEN
  68. NAPROXEN [Suspect]
     Active Substance: NAPROXEN
  69. NUCALA [Suspect]
     Active Substance: MEPOLIZUMAB
  70. ORENCIA [Suspect]
     Active Substance: ABATACEPT
     Dosage: 125 MG WEEK
     Route: 042
  71. OXYCODONE [Suspect]
     Active Substance: OXYCODONE\OXYCODONE HYDROCHLORIDE
  72. OXYCODONE TEREPHTHALATE [Suspect]
     Active Substance: OXYCODONE TEREPHTHALATE
  73. PERIOGARD [Suspect]
     Active Substance: CHLORHEXIDINE GLUCONATE
     Route: 061
  74. PHENYLEPHRINE HYDROCHLORIDE [Suspect]
     Active Substance: PHENYLEPHRINE HYDROCHLORIDE
  75. PHTHALYLSULFATHIAZOLE [Suspect]
     Active Substance: PHTHALYLSULFATHIAZOLE
     Dosage: 2000 MM DAILY
  76. PSEUDOEPHEDRINE HYDROCHLORIDE [Suspect]
     Active Substance: PSEUDOEPHEDRINE HYDROCHLORIDE
  77. AIMOVIG [Suspect]
     Active Substance: ERENUMAB-AOOE
  78. RANITIDINE HYDROCHLORIDE [Suspect]
     Active Substance: RANITIDINE HYDROCHLORIDE
  79. CETIRIZINE HYDROCHLORIDE\PSEUDOEPHEDRINE HYDROCHLORIDE [Suspect]
     Active Substance: CETIRIZINE HYDROCHLORIDE\PSEUDOEPHEDRINE HYDROCHLORIDE
  80. REMICADE [Suspect]
     Active Substance: INFLIXIMAB
     Dosage: 500 MG DAILY
     Route: 058
  81. RIBOFLAVIN [Suspect]
     Active Substance: RIBOFLAVIN
  82. RITUXIMAB [Suspect]
     Active Substance: RITUXIMAB
     Dosage: 2000 MG QD / UNK / UNK / UNK / 2 G QD / 1000 MM BID
     Route: 042
  83. SULFASALAZINE [Suspect]
     Active Substance: SULFASALAZINE
     Dosage: 2000 MM QD / UNK / UNK / UNK / UNK / 1 G DAILY / 300 MG DAILY / UNK / 2 G DAILY / 1 G BID / UNK/2 G
     Route: 048
  84. SIMPONI [Suspect]
     Active Substance: GOLIMUMAB
     Route: 058
  85. SIRUKUMAB [Suspect]
     Active Substance: SIRUKUMAB
     Route: 048
  86. GOLD SODIUM THIOMALATE [Suspect]
     Active Substance: GOLD SODIUM THIOMALATE
     Route: 048
  87. STELARA [Suspect]
     Active Substance: USTEKINUMAB
     Route: 058
  88. ALENDRONATE SODIUM [Suspect]
     Active Substance: ALENDRONATE SODIUM
     Route: 048
  89. SULFAMETHOXAZOLE\TRIMETHOPRIM [Suspect]
     Active Substance: SULFAMETHOXAZOLE\TRIMETHOPRIM
  90. THIAMINE HYDROCHLORIDE [Suspect]
     Active Substance: THIAMINE HYDROCHLORIDE
  91. TOCILIZUMAB [Suspect]
     Active Substance: TOCILIZUMAB
     Route: 058
  92. TOFACITINIB [Suspect]
     Active Substance: TOFACITINIB
     Dosage: 5 MG BID / 10 MG DAILY / 10 MG DAILY
     Route: 048
  93. TOPIRAMATE [Suspect]
     Active Substance: TOPIRAMATE
     Dosage: 25 MG DAILY / 3 MG DAILY
  94. TRIAMCINOLONE ACETONIDE [Suspect]
     Active Substance: TRIAMCINOLONE ACETONIDE
  95. USTEKINUMAB [Suspect]
     Active Substance: USTEKINUMAB
     Route: 058
  96. VITAMIN A [Suspect]
     Active Substance: VITAMIN A
     Dosage: 1 DF UNK
  97. VITAMIN C [Suspect]
     Active Substance: ASCORBIC ACID
  98. VITAMIN D3 [Suspect]
     Active Substance: CHOLECALCIFEROL
  99. ALENDRONATE SODIUM\CHOLECALCIFEROL [Suspect]
     Active Substance: ALENDRONATE SODIUM\CHOLECALCIFEROL
  100. XELJANZ [Suspect]
     Active Substance: TOFACITINIB CITRATE
     Dosage: 10 MG DAILY / 20 MG DAILY / UNK / 10 MG DAILY
     Route: 048
  101. CETIRIZINE HYDROCHLORIDE [Suspect]
     Active Substance: CETIRIZINE HYDROCHLORIDE
  102. CETIRIZINE HYDROCHLORIDE [Suspect]
     Active Substance: CETIRIZINE HYDROCHLORIDE
  103. DESOGESTREL AND ETHINYL ESTRADIOL [Concomitant]
     Active Substance: DESOGESTREL\ETHINYL ESTRADIOL
  104. ALENDRONIC ACID [Suspect]
     Active Substance: ALENDRONIC ACID
     Route: 048
  105. ALENDRONATE SODIUM\CHOLECALCIFEROL [Suspect]
     Active Substance: ALENDRONATE SODIUM\CHOLECALCIFEROL
  106. CERTOLIZUMAB PEGOL [Suspect]
     Active Substance: CERTOLIZUMAB PEGOL
     Dosage: UNK / UNK / UNK / UNK / UNK / 200 MG UNK
     Route: 058
  107. CHLORHEXIDINE GLUCONATE [Suspect]
     Active Substance: CHLORHEXIDINE GLUCONATE
     Route: 061
  108. DICLOFENAC SODIUM [Suspect]
     Active Substance: DICLOFENAC\DICLOFENAC SODIUM
     Dosage: UNK / UNK / 50 MG UNK
     Route: 058
  109. ERENUMAB [Suspect]
     Active Substance: ERENUMAB

REACTIONS (51)
  - Onychomadesis [Fatal]
  - Onychomycosis [Fatal]
  - Pain [Fatal]
  - Pemphigus [Fatal]
  - Pericarditis [Fatal]
  - Psoriatic arthropathy [Fatal]
  - Rash [Fatal]
  - Rheumatic fever [Fatal]
  - Rheumatoid arthritis [Fatal]
  - C-reactive protein abnormal [Fatal]
  - Sleep disorder [Fatal]
  - Swelling [Fatal]
  - Synovitis [Fatal]
  - Systemic lupus erythematosus [Fatal]
  - Type 2 diabetes mellitus [Fatal]
  - Wound [Fatal]
  - Contraindicated product administered [Fatal]
  - Drug ineffective [Fatal]
  - Ill-defined disorder [Fatal]
  - Off label use [Fatal]
  - C-reactive protein increased [Fatal]
  - Product use in unapproved indication [Fatal]
  - Product use issue [Fatal]
  - Therapeutic product effect decreased [Fatal]
  - Therapeutic product effect incomplete [Fatal]
  - Treatment failure [Fatal]
  - Back injury [Fatal]
  - Bursitis [Fatal]
  - Fall [Fatal]
  - Finger deformity [Fatal]
  - Folliculitis [Fatal]
  - Confusional state [Fatal]
  - Gait inability [Fatal]
  - Gastrooesophageal reflux disease [Fatal]
  - Hepatitis [Fatal]
  - Hypoaesthesia [Fatal]
  - Injury [Fatal]
  - Liver function test increased [Fatal]
  - Mobility decreased [Fatal]
  - Muscular weakness [Fatal]
  - Neck pain [Fatal]
  - Pain in extremity [Fatal]
  - Drug hypersensitivity [Fatal]
  - Weight increased [Fatal]
  - Wheezing [Fatal]
  - Wound infection [Fatal]
  - Pneumonia [Fatal]
  - Dyspnoea [Fatal]
  - Infusion related reaction [Fatal]
  - Injection site reaction [Fatal]
  - Nausea [Fatal]
